FAERS Safety Report 4728047-6 (Version None)
Quarter: 2005Q3

REPORT INFORMATION
  Report Type: 
  Country: None (occurrence: None)
  Receive Date: 20050721
  Receipt Date: 20050527
  Transmission Date: 20060218
  Serious: No
  Sender: FDA-Public Use
  Company Number: 2005SP001073

PATIENT
  Age: 50 Year
  Sex: Male
  Weight: 117.9352 kg

DRUGS (8)
  1. LUNESTA [Suspect]
     Indication: INSOMNIA
     Dosage: 2 MG;HS;ORAL
     Route: 048
     Dates: start: 20050524, end: 20050526
  2. ASACOL [Concomitant]
  3. NEXIUM [Concomitant]
  4. SEROQUEL [Concomitant]
  5. LOTREL [Concomitant]
  6. DIAZOXIDE [Concomitant]
  7. SINGULAIR [Concomitant]
  8. GLUCOPHAGE [Concomitant]

REACTIONS (2)
  - DYSGEUSIA [None]
  - INSOMNIA [None]
